FAERS Safety Report 24978960 (Version 1)
Quarter: 2025Q1

REPORT INFORMATION
  Report Type: Spontaneous
  Country: CZ (occurrence: CZ)
  Receive Date: 20250218
  Receipt Date: 20250218
  Transmission Date: 20250408
  Serious: Yes (Other)
  Sender: UNITED THERAPEUTICS
  Company Number: CZ-UNITED THERAPEUTICS-UNT-2025-004867

PATIENT
  Age: 76 Year

DRUGS (4)
  1. REMODULIN [Suspect]
     Active Substance: TREPROSTINIL
     Indication: Pulmonary hypertension
  2. RIOCIGUAT [Concomitant]
     Active Substance: RIOCIGUAT
     Indication: Pulmonary hypertension
  3. RIFAXIMIN [Concomitant]
     Active Substance: RIFAXIMIN
     Indication: Gastrointestinal microorganism overgrowth
  4. RIFAXIMIN [Concomitant]
     Active Substance: RIFAXIMIN
     Indication: Diverticulum intestinal

REACTIONS (5)
  - Systemic scleroderma [Unknown]
  - Oesophageal candidiasis [Unknown]
  - Erosive oesophagitis [Unknown]
  - Raynaud^s phenomenon [Unknown]
  - Gastrointestinal microorganism overgrowth [Unknown]
